FAERS Safety Report 7155897-1 (Version None)
Quarter: 2010Q4

REPORT INFORMATION
  Report Type: 
  Country: None (occurrence: None)
  Receive Date: 20101214
  Receipt Date: 20101202
  Transmission Date: 20110411
  Serious: Yes (Life-Threatening, Other)
  Sender: FDA-Public Use
  Company Number: FR-BRISTOL-MYERS SQUIBB COMPANY-15433253

PATIENT
  Age: 79 Year
  Sex: Female

DRUGS (8)
  1. GLUCOPHAGE [Suspect]
     Route: 048
     Dates: end: 20101011
  2. ATENOLOL [Suspect]
     Dosage: 1 DF=DOSE NOT MENTIONED,TAB.
     Route: 048
     Dates: end: 20101011
  3. LASILIX RETARD [Suspect]
     Dosage: CAPS.
     Route: 048
     Dates: end: 20101011
  4. MODAMIDE [Suspect]
     Dosage: TABS.
     Route: 048
     Dates: end: 20101011
  5. FORTZAAR [Suspect]
     Dosage: 1DF=DOSE NOT MENTIONED,TABS.
     Route: 048
     Dates: end: 20101011
  6. DIAMICRON [Suspect]
     Dosage: MODIFIED RELEASE TABS.
     Route: 048
     Dates: end: 20101011
  7. JANUVIA [Suspect]
     Dosage: TABS.
     Route: 048
     Dates: end: 20101011
  8. ALLOPURINOL [Suspect]
     Dosage: 1 DF=DOSE NOT MENTIONED,TAB.
     Route: 048
     Dates: end: 20101011

REACTIONS (5)
  - DEHYDRATION [None]
  - DIARRHOEA [None]
  - HYPERKALAEMIA [None]
  - LACTIC ACIDOSIS [None]
  - RENAL FAILURE ACUTE [None]
